FAERS Safety Report 15541148 (Version 4)
Quarter: 2019Q1

REPORT INFORMATION
  Report Type: Spontaneous
  Country: IL (occurrence: IL)
  Receive Date: 20181023
  Receipt Date: 20190304
  Transmission Date: 20190417
  Serious: Yes (Life-Threatening, Hospitalization)
  Sender: FDA-Public Use
  Company Number: IL-CELGENEUS-ISR-20180801480

PATIENT
  Age: 74 Year
  Sex: Female
  Weight: 62 kg

DRUGS (35)
  1. VENETOCLAX. [Concomitant]
     Active Substance: VENETOCLAX
     Dosage: 50 MILLIGRAM
     Route: 048
     Dates: start: 20180522, end: 20180525
  2. TAVANIC [Concomitant]
     Active Substance: LEVOFLOXACIN
     Indication: CELLULITIS
     Dosage: 500 MILLIGRAM
     Route: 048
     Dates: start: 20180520
  3. CLEXANE INJECTIONS [Concomitant]
     Indication: AORTIC VALVE REPLACEMENT
     Dosage: 60 MILLIGRAM
     Route: 058
     Dates: start: 20180508
  4. VITAMIN D [Concomitant]
     Active Substance: CHOLECALCIFEROL
     Indication: VITAMIN D DEFICIENCY
     Dosage: 2000 IU (INTERNATIONAL UNIT)
     Route: 048
     Dates: start: 20180418
  5. AZACITIDINE INJECTABLE [Suspect]
     Active Substance: AZACITIDINE
     Indication: ACUTE MYELOID LEUKAEMIA
     Route: 041
     Dates: start: 20180517
  6. VENETOCLAX. [Concomitant]
     Active Substance: VENETOCLAX
     Dosage: 400 MILLIGRAM
     Route: 048
     Dates: start: 20180519, end: 20180521
  7. VANCOMICIN [Concomitant]
     Indication: CELLULITIS
     Route: 041
     Dates: start: 20180522
  8. ELTROXIN [Concomitant]
     Active Substance: LEVOTHYROXINE
     Indication: HYPOTHYROIDISM
     Dosage: 150 MICROGRAM
     Route: 048
     Dates: start: 201405
  9. VABEN [Concomitant]
     Active Substance: OXAZEPAM
     Indication: ANXIETY
     Dosage: 10 MILLIGRAM
     Route: 048
     Dates: start: 20150209
  10. NEUPOGEN [Concomitant]
     Active Substance: FILGRASTIM
     Indication: ACUTE MYELOID LEUKAEMIA
     Route: 058
     Dates: start: 20180730, end: 20180731
  11. VENETOCLAX. [Concomitant]
     Active Substance: VENETOCLAX
     Dosage: 200 MILLIGRAM
     Route: 048
     Dates: start: 20180525, end: 20180525
  12. ALLOPURINOL. [Concomitant]
     Active Substance: ALLOPURINOL
     Indication: PROPHYLAXIS
     Dosage: 100 MILLIGRAM
     Route: 048
  13. VORICONAZOLE. [Concomitant]
     Active Substance: VORICONAZOLE
     Indication: CELLULITIS
     Route: 048
     Dates: start: 20180614
  14. FUSID [Concomitant]
     Indication: RENAL FAILURE
     Route: 041
     Dates: start: 20180523
  15. RESPRIM [Concomitant]
     Active Substance: SULFAMETHOXAZOLE\TRIMETHOPRIM
     Indication: ANTIBIOTIC PROPHYLAXIS
     Route: 048
     Dates: start: 20180524
  16. LOSARTAN POTASSIUM AND HYDROCHLOROTHIAZIDE [Concomitant]
     Active Substance: HYDROCHLOROTHIAZIDE\LOSARTAN POTASSIUM
     Indication: HYPERTENSION
     Dosage: 50 MILLIGRAM
     Route: 048
     Dates: start: 20140701
  17. VENETOCLAX. [Concomitant]
     Active Substance: VENETOCLAX
     Dosage: 400 MILLIGRAM
     Route: 048
     Dates: start: 20180528, end: 20180613
  18. TAZOCIN [Concomitant]
     Active Substance: PIPERACILLIN SODIUM\TAZOBACTAM SODIUM
     Indication: CELLULITIS
     Route: 041
     Dates: start: 20180522
  19. COUMADIN [Suspect]
     Active Substance: WARFARIN SODIUM
     Indication: PRODUCT USED FOR UNKNOWN INDICATION
     Route: 065
  20. VENETOCLAX. [Concomitant]
     Active Substance: VENETOCLAX
     Dosage: 200 MILLIGRAM
     Route: 048
     Dates: start: 20180518, end: 20180518
  21. VENETOCLAX. [Concomitant]
     Active Substance: VENETOCLAX
     Dosage: 50 MILLIGRAM
     Route: 048
     Dates: start: 20180729
  22. SPASMEX [Concomitant]
     Indication: RENAL FAILURE
     Dosage: 20 MILLIGRAM
     Route: 048
     Dates: start: 20180517
  23. POW MAGNESIUM [Concomitant]
     Indication: HYPOMAGNESAEMIA
     Dosage: 300 MILLIGRAM
     Route: 048
     Dates: start: 20180517
  24. NORMALAX [Concomitant]
     Indication: CONSTIPATION
     Dosage: 2 MILLIGRAM
     Route: 048
     Dates: start: 20170512
  25. NORMAL SALINE SOLUTION [Concomitant]
     Indication: PROPHYLAXIS
     Dosage: 0.9%
     Route: 041
     Dates: start: 20180516, end: 20180521
  26. ACAMOL [Concomitant]
     Active Substance: ACETAMINOPHEN
     Indication: PYREXIA
     Route: 041
     Dates: start: 20180522
  27. FOLIC ACID. [Concomitant]
     Active Substance: FOLIC ACID
     Indication: FOLATE DEFICIENCY
     Dosage: 5 MILLIGRAM
     Route: 048
     Dates: start: 20170219
  28. CALCIUM SANDOZ [Concomitant]
     Active Substance: CALCIUM
     Indication: HYPOCALCAEMIA
     Dosage: 500 MICROGRAM
     Route: 048
     Dates: start: 20180415
  29. COUMADIN [Suspect]
     Active Substance: WARFARIN SODIUM
     Indication: AORTIC VALVE REPLACEMENT
     Dosage: 5 MILLIGRAM
     Route: 048
     Dates: start: 20180614
  30. VENETOCLAX. [Concomitant]
     Active Substance: VENETOCLAX
     Indication: ACUTE MYELOID LEUKAEMIA
     Dosage: 100 MILLIGRAM
     Route: 048
     Dates: start: 20180517, end: 20180517
  31. VENETOCLAX. [Concomitant]
     Active Substance: VENETOCLAX
     Dosage: 50 MILLIGRAM
     Route: 048
     Dates: start: 20180614, end: 20180728
  32. BONDORMIN [Concomitant]
     Active Substance: BROTIZOLAM
     Indication: INSOMNIA
     Dosage: .25 MILLIGRAM
     Route: 048
     Dates: start: 20180517
  33. LAXADIN [Concomitant]
     Active Substance: BISACODYL
     Indication: CONSTIPATION
     Route: 048
     Dates: start: 20180517
  34. VORICONAZOLE. [Concomitant]
     Active Substance: VORICONAZOLE
     Indication: ASPERGILLUS INFECTION
  35. LIPITOR [Concomitant]
     Active Substance: ATORVASTATIN CALCIUM
     Indication: HYPERCHOLESTEROLAEMIA
     Dosage: 20 MILLIGRAM
     Route: 048
     Dates: start: 20140701

REACTIONS (1)
  - Haematemesis [Recovered/Resolved]

NARRATIVE: CASE EVENT DATE: 20180728
